FAERS Safety Report 17585072 (Version 6)
Quarter: 2020Q4

REPORT INFORMATION
  Report Type: Report from Study
  Country: CA (occurrence: CA)
  Receive Date: 20200326
  Receipt Date: 20201124
  Transmission Date: 20210113
  Serious: Yes (Hospitalization, Other)
  Sender: FDA-Public Use
  Company Number: CA-HLS-202000232

PATIENT
  Age: 23 Year
  Sex: Male

DRUGS (3)
  1. ESTRACE [Concomitant]
     Active Substance: ESTRADIOL
     Route: 048
     Dates: start: 20180418
  2. SERTRALINE [Concomitant]
     Active Substance: SERTRALINE HYDROCHLORIDE
     Dosage: 1 1/2 OD
     Route: 048
     Dates: start: 20191101
  3. CLOZARIL [Suspect]
     Active Substance: CLOZAPINE
     Indication: SCHIZOPHRENIFORM DISORDER
     Dosage: TITRATED UP SLOWLY TO 350MG OD. LAST INCREASE WAS IN FEB-2020. DOSE WAS DECREASED TO 300MG OD ON 20-
     Route: 048
     Dates: start: 20191007, end: 20200330

REACTIONS (2)
  - Agranulocytosis [Recovered/Resolved]
  - Immunodeficiency [Unknown]

NARRATIVE: CASE EVENT DATE: 20200320
